FAERS Safety Report 24188912 (Version 1)
Quarter: 2024Q3

REPORT INFORMATION
  Report Type: Spontaneous
  Country: US (occurrence: US)
  Receive Date: 20240808
  Receipt Date: 20240808
  Transmission Date: 20241017
  Serious: No
  Sender: OTSUKA
  Company Number: US-OTSUKA-2024_007147

PATIENT
  Age: 63 Year
  Sex: Female

DRUGS (28)
  1. ARIPIPRAZOLE [Suspect]
     Active Substance: ARIPIPRAZOLE
     Indication: Depression
     Dosage: 15 MG, QD
     Route: 065
  2. ARIPIPRAZOLE [Suspect]
     Active Substance: ARIPIPRAZOLE
     Indication: Anxiety
     Dosage: UNK
     Route: 065
  3. ARIPIPRAZOLE [Suspect]
     Active Substance: ARIPIPRAZOLE
     Indication: Post-traumatic stress disorder
  4. ARIPIPRAZOLE [Suspect]
     Active Substance: ARIPIPRAZOLE
     Indication: Anorexia nervosa
  5. QUETIAPINE [Concomitant]
     Active Substance: QUETIAPINE
     Indication: Depression
     Dosage: 50 MG, QD 50 MG QHS (EVERY NIGHT AT BEDTIM)
     Route: 065
  6. QUETIAPINE [Concomitant]
     Active Substance: QUETIAPINE
     Indication: Anxiety
  7. QUETIAPINE [Concomitant]
     Active Substance: QUETIAPINE
     Indication: Post-traumatic stress disorder
  8. QUETIAPINE [Concomitant]
     Active Substance: QUETIAPINE
     Indication: Anorexia nervosa
  9. BUPROPION [Concomitant]
     Active Substance: BUPROPION
     Indication: Depression
     Dosage: 450 MG, QD
     Route: 065
  10. BUPROPION [Concomitant]
     Active Substance: BUPROPION
     Indication: Anxiety
     Dosage: UNK
     Route: 065
  11. BUPROPION [Concomitant]
     Active Substance: BUPROPION
     Indication: Post-traumatic stress disorder
  12. BUPROPION [Concomitant]
     Active Substance: BUPROPION
     Indication: Anorexia nervosa
  13. DULOXETINE [Concomitant]
     Active Substance: DULOXETINE
     Indication: Depression
     Dosage: 120 MG, QD
     Route: 065
  14. DULOXETINE [Concomitant]
     Active Substance: DULOXETINE
     Indication: Anxiety
  15. DULOXETINE [Concomitant]
     Active Substance: DULOXETINE
     Indication: Post-traumatic stress disorder
  16. DULOXETINE [Concomitant]
     Active Substance: DULOXETINE
     Indication: Anorexia nervosa
  17. TRAZODONE [Concomitant]
     Active Substance: TRAZODONE HYDROCHLORIDE
     Indication: Depression
     Dosage: 150 MG, QD
     Route: 065
  18. TRAZODONE [Concomitant]
     Active Substance: TRAZODONE HYDROCHLORIDE
     Indication: Anxiety
     Dosage: UNK
     Route: 065
  19. TRAZODONE [Concomitant]
     Active Substance: TRAZODONE HYDROCHLORIDE
     Indication: Post-traumatic stress disorder
  20. TRAZODONE [Concomitant]
     Active Substance: TRAZODONE HYDROCHLORIDE
     Indication: Anorexia nervosa
  21. BENZTROPINE [Concomitant]
     Active Substance: BENZTROPINE
     Indication: Depression
     Dosage: 2 MG, BID
     Route: 065
  22. BENZTROPINE [Concomitant]
     Active Substance: BENZTROPINE
     Indication: Anxiety
     Dosage: UNK
     Route: 065
  23. BENZTROPINE [Concomitant]
     Active Substance: BENZTROPINE
     Indication: Post-traumatic stress disorder
  24. BENZTROPINE [Concomitant]
     Active Substance: BENZTROPINE
     Indication: Anorexia nervosa
  25. OLANZAPINE [Concomitant]
     Active Substance: OLANZAPINE
     Indication: Depression
     Dosage: UNK
     Route: 065
  26. OLANZAPINE [Concomitant]
     Active Substance: OLANZAPINE
     Indication: Anxiety
     Dosage: 5 MG (UPTO 5 MG)
     Route: 065
  27. OLANZAPINE [Concomitant]
     Active Substance: OLANZAPINE
     Indication: Post-traumatic stress disorder
  28. OLANZAPINE [Concomitant]
     Active Substance: OLANZAPINE
     Indication: Anorexia nervosa

REACTIONS (1)
  - Product use in unapproved indication [Unknown]
